FAERS Safety Report 18422832 (Version 1)
Quarter: 2020Q4

REPORT INFORMATION
  Report Type: Spontaneous
  Country: CA (occurrence: CA)
  Receive Date: 20201023
  Receipt Date: 20201023
  Transmission Date: 20210114
  Serious: Yes (Death)
  Sender: FDA-Public Use
  Company Number: CA-009507513-2008CAN009909

PATIENT
  Age: 52 Year
  Sex: Male
  Weight: 123.6 kg

DRUGS (3)
  1. PREDNISONE. [Concomitant]
     Active Substance: PREDNISONE
     Indication: ADRENAL INSUFFICIENCY
  2. KEYTRUDA [Suspect]
     Active Substance: PEMBROLIZUMAB
     Indication: PROGRESSIVE MULTIFOCAL LEUKOENCEPHALOPATHY
     Dosage: 200 MILLIGRAM ONCE/ 2 MILLIGRAM/KILOGRAM; SCHEDULED FOR THREE DOSES OF PEMBROLIZUMAB AT FOUR WEEK IN
     Route: 042
     Dates: start: 20200131, end: 20200131
  3. PREDNISONE. [Concomitant]
     Active Substance: PREDNISONE
     Indication: GRAFT VERSUS HOST DISEASE
     Dosage: UNK

REACTIONS (3)
  - Disease progression [Fatal]
  - Off label use [Unknown]
  - Drug ineffective for unapproved indication [Unknown]

NARRATIVE: CASE EVENT DATE: 2020
